FAERS Safety Report 5428168-9 (Version None)
Quarter: 2007Q3

REPORT INFORMATION
  Report Type: 
  Country: None (occurrence: None)
  Receive Date: 20070828
  Receipt Date: 20070731
  Transmission Date: 20080115
  Serious: Yes (Other)
  Sender: FDA-Public Use
  Company Number: US-GILEAD-2007-0012768

PATIENT
  Sex: Male

DRUGS (4)
  1. ATRIPLA [Suspect]
     Indication: HIV INFECTION
     Dates: start: 20060801, end: 20070701
  2. PROZAC [Concomitant]
     Route: 048
  3. VYTORIN [Concomitant]
     Route: 048
  4. XANAX [Concomitant]
     Route: 048

REACTIONS (1)
  - GYNAECOMASTIA [None]
